FAERS Safety Report 6614974-1 (Version None)
Quarter: 2010Q1

REPORT INFORMATION
  Report Type: 
  Country: None (occurrence: None)
  Receive Date: 20100305
  Receipt Date: 20100223
  Transmission Date: 20100710
  Serious: Yes (Hospitalization)
  Sender: FDA-Public Use
  Company Number: JP-ELI_LILLY_AND_COMPANY-JP201001003401

PATIENT
  Sex: Female
  Weight: 53.7 kg

DRUGS (13)
  1. GEMCITABINE HCL [Suspect]
     Indication: PANCREATIC CARCINOMA NON-RESECTABLE
     Dosage: 1100 MG, WEEKLY (1/W)
     Dates: start: 20100108
  2. BLINDED THERAPY [Suspect]
     Indication: PANCREATIC CARCINOMA NON-RESECTABLE
     Dosage: 1 ML, WEEKLY (1/W)
     Route: 058
     Dates: start: 20100108
  3. TAKEPRON [Concomitant]
     Indication: VARICES OESOPHAGEAL
     Dosage: 30 MG, DAILY (1/D)
     Route: 048
  4. LAC B [Concomitant]
     Indication: DIARRHOEA
     Dosage: 2 MG, 3/D
     Route: 048
     Dates: start: 20091116
  5. GLORIAMIN [Concomitant]
     Indication: VARICES OESOPHAGEAL
     Dosage: 0.5 G, 3/D
     Route: 048
     Dates: start: 20091117
  6. LORFENAMIN [Concomitant]
     Indication: CANCER PAIN
     Dosage: 60 MG, AS NEEDED
     Route: 048
     Dates: start: 20091121
  7. MUCOSTA [Concomitant]
     Indication: GASTRITIS PROPHYLAXIS
     Dosage: 100 MG, AS NEEDED
     Route: 048
     Dates: start: 20091121
  8. ADSORBIN [Concomitant]
     Indication: DIARRHOEA
     Dosage: 1 G, 3/D
     Route: 048
     Dates: start: 20091127
  9. TANNALBIN [Concomitant]
     Indication: DIARRHOEA
     Dosage: 1 G, 3/D
     Route: 048
     Dates: start: 20091127
  10. ALDACTONE [Concomitant]
     Indication: OEDEMA
     Dosage: 25 MG, 2/D
     Route: 048
     Dates: start: 20091201
  11. CODEINE SULFATE [Concomitant]
     Indication: DIARRHOEA
     Dosage: 1 G, 3/D
     Route: 048
     Dates: start: 20091207
  12. BLOSTAR M [Concomitant]
     Indication: VARICES OESOPHAGEAL
     Dosage: 40 MG, DAILY (1/D)
     Route: 048
     Dates: start: 20100122
  13. NAUZELIN [Concomitant]
     Indication: PROPHYLAXIS OF NAUSEA AND VOMITING
     Dosage: 10 MG, AS NEEDED
     Route: 048
     Dates: start: 20100107

REACTIONS (5)
  - DISSEMINATED INTRAVASCULAR COAGULATION [None]
  - HAEMOGLOBIN DECREASED [None]
  - LYMPHOCYTE COUNT DECREASED [None]
  - NEUTROPHIL COUNT DECREASED [None]
  - PLATELET COUNT DECREASED [None]
